FAERS Safety Report 7531698-7 (Version None)
Quarter: 2011Q2

REPORT INFORMATION
  Report Type: 
  Country: None (occurrence: None)
  Receive Date: 20110608
  Receipt Date: 20110525
  Transmission Date: 20111010
  Serious: Yes (Hospitalization)
  Sender: FDA-Public Use
  Company Number: US-AMGEN-USANI2010005197

PATIENT
  Age: 64 Year
  Sex: Female

DRUGS (9)
  1. LEVOXYL [Concomitant]
     Dosage: 100 A?G, QD
     Route: 048
  2. VITAMIN D2 [Concomitant]
     Dosage: 50000 IU, QWK
     Route: 048
  3. PROPRANOLOL [Concomitant]
     Dosage: 20 MG, TID
     Route: 048
  4. ZOLOFT [Concomitant]
     Dosage: 50 MG, QD
     Route: 048
  5. XANAX [Concomitant]
     Dosage: 0.25 MG, QD
     Route: 048
  6. MULTI-VITAMIN [Concomitant]
     Dosage: UNK
     Route: 048
  7. LIPITOR [Concomitant]
     Dosage: 20 MG, QD
     Route: 048
  8. ETANERCEPT [Suspect]
     Indication: PSORIASIS
     Dosage: 50 MG, QWK
     Route: 058
     Dates: start: 20061219
  9. AMBIEN [Concomitant]
     Dosage: 10 MG, PRN
     Route: 048

REACTIONS (2)
  - CHEST DISCOMFORT [None]
  - GASTROOESOPHAGEAL REFLUX DISEASE [None]
